FAERS Safety Report 9741046 (Version 2)
Quarter: 2014Q1

REPORT INFORMATION
  Report Type: Spontaneous
  Country: JP (occurrence: JP)
  Receive Date: 20131209
  Receipt Date: 20140129
  Transmission Date: 20141002
  Serious: Yes (Hospitalization)
  Sender: FDA-Public Use
  Company Number: JP-009507513-1312JPN003612

PATIENT
  Age: 70 Year
  Sex: Male
  Weight: 64 kg

DRUGS (6)
  1. GLACTIV [Suspect]
     Indication: TYPE 2 DIABETES MELLITUS
     Dosage: DAILY DOSE UNKNOWN
     Route: 048
     Dates: start: 201103, end: 201108
  2. GLACTIV [Suspect]
     Dosage: 100 MG, QD, AFTER BREAKFAST
     Route: 048
     Dates: start: 201108
  3. LANSOPRAZOLE [Concomitant]
     Dosage: 15 MG, HS
     Route: 048
  4. CARBOCYSTEINE [Concomitant]
     Dosage: 500 MG, TID, AFTER EACH MEAL
     Route: 048
  5. FLUVASTATIN SODIUM [Concomitant]
     Dosage: 20 MG, QD, AFTER DINNER
     Route: 048
  6. SPIRIVA [Concomitant]
     Dosage: 5 MICROGRAM, QD, INHALATION
     Route: 055

REACTIONS (1)
  - Lung disorder [Recovering/Resolving]
